FAERS Safety Report 5219145-1 (Version None)
Quarter: 2007Q1

REPORT INFORMATION
  Report Type: 
  Country: None (occurrence: None)
  Receive Date: 20061121
  Receipt Date: 20060920
  Transmission Date: 20070707
  Serious: No
  Sender: FDA-Public Use
  Company Number: TPA2006A01623

PATIENT
  Age: 60 Year
  Sex: Female
  Weight: 63.5036 kg

DRUGS (2)
  1. ROZEREM [Suspect]
     Indication: INSOMNIA
     Dosage: 8 MG, QHS, PER ORAL
     Route: 048
     Dates: start: 20060906
  2. LIPITOR (ATORVASTATIN) (10 MILLIGRAM) [Concomitant]

REACTIONS (3)
  - ABDOMINAL DISTENSION [None]
  - BREAST ENLARGEMENT [None]
  - WEIGHT INCREASED [None]
